FAERS Safety Report 5566880-1 (Version None)
Quarter: 2007Q4

REPORT INFORMATION
  Report Type: 
  Country: None (occurrence: None)
  Receive Date: 20071219
  Receipt Date: 20061207
  Transmission Date: 20080405
  Serious: Yes (Other)
  Sender: FDA-Public Use
  Company Number: US-BRISTOL-MYERS SQUIBB COMPANY-13494687

PATIENT
  Sex: Female

DRUGS (5)
  1. PRAVACHOL [Suspect]
     Indication: DYSLIPIDAEMIA
     Route: 048
     Dates: start: 20051031, end: 20051111
  2. DIAZEPAM [Concomitant]
  3. FIORICET [Concomitant]
  4. LAXATIVES [Concomitant]
  5. ST JOHN WORT [Concomitant]

REACTIONS (2)
  - PAIN [None]
  - SENSORY LOSS [None]
